FAERS Safety Report 8384924-9 (Version None)
Quarter: 2012Q2

REPORT INFORMATION
  Report Type: 
  Country: None (occurrence: None)
  Receive Date: 20120524
  Receipt Date: 20120521
  Transmission Date: 20120825
  Serious: Yes (Other)
  Sender: FDA-Public Use
  Company Number: US-PFIZER INC-2012123214

PATIENT
  Sex: Female
  Weight: 49.887 kg

DRUGS (3)
  1. NICOTROL [Suspect]
     Dosage: UNK
  2. CHANTIX [Suspect]
     Indication: SMOKING CESSATION THERAPY
     Dosage: 0.5 MG, 1X/DAY
     Route: 048
  3. CYMBALTA [Concomitant]
     Indication: DEPRESSION
     Dosage: UNK

REACTIONS (10)
  - BIPOLAR DISORDER [None]
  - BACK PAIN [None]
  - JOINT INJURY [None]
  - FACIAL BONES FRACTURE [None]
  - NECK PAIN [None]
  - HERNIA [None]
  - NECK SURGERY [None]
  - WRIST FRACTURE [None]
  - ARTHRITIS [None]
  - HAND FRACTURE [None]
